FAERS Safety Report 8118378-4 (Version None)
Quarter: 2012Q1

REPORT INFORMATION
  Report Type: 
  Country: None (occurrence: None)
  Receive Date: 20120207
  Receipt Date: 20120203
  Transmission Date: 20120608
  Serious: Yes (Other)
  Sender: FDA-Public Use
  Company Number: US-PFIZER INC-2012030899

PATIENT
  Sex: Male
  Weight: 68 kg

DRUGS (1)
  1. LIPITOR [Suspect]
     Indication: BLOOD CHOLESTEROL INCREASED
     Dosage: UNK,DAILY
     Route: 048

REACTIONS (6)
  - FALL [None]
  - JOINT INJURY [None]
  - DEPRESSION [None]
  - INSOMNIA [None]
  - ARTHROPATHY [None]
  - ANXIETY [None]
